FAERS Safety Report 5355166-6 (Version None)
Quarter: 2007Q2

REPORT INFORMATION
  Report Type: 
  Country: None (occurrence: None)
  Receive Date: 20070611
  Receipt Date: 20070601
  Transmission Date: 20071010
  Serious: Yes (Hospitalization, Other)
  Sender: FDA-Public Use
  Company Number: 2007SP010544

PATIENT
  Age: 44 Year
  Sex: Male

DRUGS (4)
  1. PEG-INTRON [Suspect]
     Indication: HEPATITIS C
     Dosage: 120 MCG;SC
     Route: 058
     Dates: start: 20070420, end: 20070430
  2. PEG-INTRON [Suspect]
  3. REBETOL [Suspect]
     Indication: HEPATITIS C
     Dates: start: 20070420, end: 20070430
  4. PREDNIZONE [Concomitant]

REACTIONS (2)
  - DIABETIC COMA [None]
  - PANCREATITIS [None]
